FAERS Safety Report 8036960 (Version 3)
Quarter: 2012Q4

REPORT INFORMATION
  Report Type: 
  Country: US (occurrence: US)
  Receive Date: 20110715
  Receipt Date: 20121130
  Transmission Date: 20130627
  Serious: Yes (Hospitalization)
  Sender: FDA-Public Use
  Company Number: US-JNJFOC-20110703374

PATIENT
  Age: 38 Year
  Sex: Female

DRUGS (9)
  1. PARACETAMOL [Suspect]
     Route: 048
  2. PARACETAMOL [Suspect]
     Indication: PRODUCT USED FOR UNKNOWN INDICATION
     Dosage: 5 grams twice, 8 hours apart
     Route: 048
     Dates: start: 20080604
  3. OLANZAPINE [Concomitant]
     Indication: BIPOLAR DISORDER
     Route: 065
     Dates: start: 20080603
  4. CYCLOBENZAPRINE [Concomitant]
     Indication: PAIN
     Dosage: 2 to 3 times
     Route: 065
     Dates: start: 20080603
  5. ZIPRASIDONE [Concomitant]
     Indication: BIPOLAR DISORDER
     Route: 065
     Dates: start: 20080603
  6. LORAZEPAM [Concomitant]
     Indication: ANXIETY
     Route: 065
     Dates: start: 20080603
  7. CARBAMAZEPINE [Concomitant]
     Indication: CONVULSION
     Route: 065
     Dates: start: 20080526
  8. ESOMEPRAZOLE [Concomitant]
     Indication: GASTROOESOPHAGEAL REFLUX DISEASE
     Route: 065
     Dates: start: 20080603
  9. UNKNOWN MEDICATION [Concomitant]
     Indication: INSOMNIA
     Dosage: every bed time
     Route: 065
     Dates: start: 20080603

REACTIONS (6)
  - Intentional overdose [Unknown]
  - Liver injury [Unknown]
  - Aspartate aminotransferase increased [None]
  - Alanine aminotransferase increased [None]
  - Blood bilirubin [None]
  - Blood bilirubin increased [None]
